FAERS Safety Report 7458680-2 (Version None)
Quarter: 2011Q2

REPORT INFORMATION
  Report Type: 
  Country: None (occurrence: None)
  Receive Date: 20110504
  Receipt Date: 20110426
  Transmission Date: 20111010
  Serious: Yes (Other)
  Sender: FDA-Public Use
  Company Number: DE-ABBOTT-11P-062-0722934-00

PATIENT
  Sex: Male

DRUGS (2)
  1. ANTIHYPERTENSIVE DRUG [Concomitant]
     Indication: HYPERTENSION
  2. HUMIRA [Suspect]
     Indication: RHEUMATOID ARTHRITIS
     Route: 058
     Dates: start: 20061031, end: 20110331

REACTIONS (2)
  - LIGAMENT RUPTURE [None]
  - CARTILAGE INJURY [None]
